FAERS Safety Report 11080271 (Version 4)
Quarter: 2015Q2

REPORT INFORMATION
  Report Type: Spontaneous
  Country: JP (occurrence: JP)
  Receive Date: 20150430
  Receipt Date: 20150529
  Transmission Date: 20150821
  Serious: Yes (Other)
  Sender: FDA-Public Use
  Company Number: JP-BAXTER-2015BAX022332

PATIENT
  Age: 73 Year
  Sex: Female
  Weight: 55 kg

DRUGS (14)
  1. FENTANYL. [Suspect]
     Active Substance: FENTANYL
     Dosage: A TOTAL DOSE BEFORE COMPLETION OF OPERATION
     Route: 042
  2. ROCURONIUM BROMIDE. [Suspect]
     Active Substance: ROCURONIUM BROMIDE
     Indication: ENDOTRACHEAL INTUBATION
     Route: 065
  3. FLURBIPROFEN AXETIL [Suspect]
     Active Substance: FLURBIPROFEN AXETIL
     Indication: POSTOPERATIVE ANALGESIA
     Dosage: AT 20 MIN BEFORE COMPLETION OF OPERATION
     Route: 042
  4. FENTANYL. [Suspect]
     Active Substance: FENTANYL
     Indication: POSTOPERATIVE ANALGESIA
     Dosage: 800 MICROGRAM
     Route: 008
  5. REMIFENTANIL HYDROCHLORIDE [Suspect]
     Active Substance: REMIFENTANIL HYDROCHLORIDE
     Indication: MAINTENANCE OF ANAESTHESIA
     Dosage: 0.1 TO 0.3 MICROGRAM/KG/MIN
     Route: 042
  6. HUMAN SERUM ALBUMIN [Suspect]
     Active Substance: ALBUMIN (HUMAN)
     Indication: HAEMORRHAGE
     Route: 042
  7. MEPIVACAINE HYDROCHLORIDE. [Suspect]
     Active Substance: MEPIVACAINE HYDROCHLORIDE
     Route: 008
  8. OXYGEN. [Suspect]
     Active Substance: OXYGEN
     Indication: OXYGEN SUPPLEMENTATION
     Dosage: 1 L/MIN
     Route: 055
  9. LEVOBUPIVACAINE HYDROCHLORIDE [Suspect]
     Active Substance: LEVOBUPIVACAINE HYDROCHLORIDE
     Indication: POSTOPERATIVE ANALGESIA
     Route: 008
  10. SUGAMMADEX SODIUM [Suspect]
     Active Substance: SUGAMMADEX SODIUM
     Indication: EXTUBATION
     Route: 065
  11. SUPRANE [Suspect]
     Active Substance: DESFLURANE
     Indication: MAINTENANCE OF ANAESTHESIA
     Route: 055
  12. PROPOFOL. [Suspect]
     Active Substance: PROPOFOL
     Indication: INDUCTION OF ANAESTHESIA
     Route: 042
  13. EPHEDRINE HYDROCHLORIDE [Suspect]
     Active Substance: EPHEDRINE HYDROCHLORIDE
     Indication: BLOOD PRESSURE SYSTOLIC DECREASED
     Dosage: 12 TIMES IN TOTAL, A TOTAL OF 48 MG
     Route: 042
  14. MEPIVACAINE HYDROCHLORIDE. [Suspect]
     Active Substance: MEPIVACAINE HYDROCHLORIDE
     Indication: EPIDURAL ANAESTHESIA
     Route: 008

REACTIONS (5)
  - Spinal pain [Recovered/Resolved]
  - Paraplegia [Unknown]
  - Post procedural complication [Unknown]
  - Spinal cord infarction [Unknown]
  - Hypotension [Recovered/Resolved]
